FAERS Safety Report 4592953-6 (Version None)
Quarter: 2005Q1

REPORT INFORMATION
  Report Type: 
  Country: None (occurrence: None)
  Receive Date: 20050228
  Receipt Date: 20050221
  Transmission Date: 20050727
  Serious: Yes (Life-Threatening)
  Sender: FDA-Public Use
  Company Number: ES-GLAXOSMITHKLINE-B0372968A

PATIENT
  Age: 35 Year
  Sex: Male

DRUGS (5)
  1. ZIDOVUDINE [Suspect]
     Indication: ACQUIRED IMMUNODEFICIENCY SYNDROME
     Dosage: 600MG TWICE PER DAY
     Route: 048
     Dates: start: 20040317, end: 20040406
  2. EPIVIR [Suspect]
     Indication: ACQUIRED IMMUNODEFICIENCY SYNDROME
     Dosage: 300MG PER DAY
     Route: 048
     Dates: start: 20030725
  3. GABAPENTIN [Suspect]
     Indication: ILL-DEFINED DISORDER
     Dosage: 1.2G THREE TIMES PER DAY
     Route: 048
     Dates: start: 20040211
  4. EFAVIRENZ [Concomitant]
     Indication: ACQUIRED IMMUNODEFICIENCY SYNDROME
     Dosage: 600MG PER DAY
     Route: 065
     Dates: start: 20030725
  5. STAVUDINE [Concomitant]
     Indication: ACQUIRED IMMUNODEFICIENCY SYNDROME
     Dosage: 80MG TWICE PER DAY
     Route: 048
     Dates: start: 20030725

REACTIONS (4)
  - GRANULOCYTOPENIA [None]
  - HAEMOGLOBIN DECREASED [None]
  - LEUKOPENIA [None]
  - WHITE BLOOD CELL COUNT DECREASED [None]
